FAERS Safety Report 5162103-6 (Version None)
Quarter: 2006Q4

REPORT INFORMATION
  Report Type: 
  Country: None (occurrence: None)
  Receive Date: 20061121
  Receipt Date: 20061106
  Transmission Date: 20070319
  Serious: Yes (Hospitalization)
  Sender: FDA-Public Use
  Company Number: 220009L06JPN

PATIENT
  Age: 12 Year
  Sex: Female
  Weight: 33 kg

DRUGS (1)
  1. SOMATROPIN (SOMATROPIN) [Suspect]
     Indication: GROWTH HORMONE DEFICIENCY
     Dates: start: 20031101

REACTIONS (11)
  - ANOREXIA [None]
  - CYST [None]
  - DIABETES INSIPIDUS [None]
  - EYE DISORDER [None]
  - GERM CELL CANCER [None]
  - HEADACHE [None]
  - HYDROCEPHALUS [None]
  - HYPOTHYROIDISM [None]
  - NAUSEA [None]
  - PINEAL NEOPLASM [None]
  - SCOTOMA [None]
